FAERS Safety Report 7770774-0 (Version None)
Quarter: 2011Q3

REPORT INFORMATION
  Report Type: 
  Country: None (occurrence: None)
  Receive Date: 20110922
  Receipt Date: 20110428
  Transmission Date: 20111222
  Serious: No
  Sender: FDA-Public Use
  Company Number: US-ASTRAZENECA-2011SE25180

PATIENT
  Age: 56 Year
  Sex: Male
  Weight: 63.5 kg

DRUGS (5)
  1. DOPAMINE TARTRATE [Concomitant]
  2. SEROQUEL XR [Suspect]
     Route: 048
  3. LIOTHYRONINE SODIUM [Concomitant]
  4. BENZTROPINE MESYLATE [Concomitant]
  5. LEVOTHYROXINE SODIUM [Concomitant]

REACTIONS (7)
  - VISUAL ACUITY REDUCED [None]
  - APHAGIA [None]
  - GAIT DISTURBANCE [None]
  - DRUG HYPERSENSITIVITY [None]
  - DYSPNOEA [None]
  - INSOMNIA [None]
  - PERIPHERAL COLDNESS [None]
